FAERS Safety Report 7450329-8 (Version None)
Quarter: 2011Q2

REPORT INFORMATION
  Report Type: 
  Country: None (occurrence: None)
  Receive Date: 20110502
  Receipt Date: 20110418
  Transmission Date: 20111010
  Serious: Yes (Hospitalization, Other)
  Sender: FDA-Public Use
  Company Number: US-CELGENEUS-163-21880-11032454

PATIENT
  Sex: Male

DRUGS (6)
  1. EXJADE [Concomitant]
     Dosage: 2000 MILLIGRAM
     Route: 065
  2. REVLIMID [Suspect]
     Indication: MYELODYSPLASTIC SYNDROME
     Dosage: 10 MILLIGRAM
     Route: 048
     Dates: start: 20100315, end: 20110301
  3. VITAMIN E [Concomitant]
     Route: 065
  4. ANTIBIOTICS [Concomitant]
     Route: 051
  5. VITAMIN C [Concomitant]
     Route: 065
  6. CALCIUM [Concomitant]
     Route: 065

REACTIONS (2)
  - CELLULITIS [None]
  - NEUTROPENIA [None]
